FAERS Safety Report 14594223 (Version 2)
Quarter: 2018Q1

REPORT INFORMATION
  Report Type: Spontaneous
  Country: IT (occurrence: IT)
  Receive Date: 20180302
  Receipt Date: 20180305
  Transmission Date: 20180509
  Serious: Yes (Death, Hospitalization)
  Sender: FDA-Public Use
  Company Number: IT-TEVA-2018-IT-860672

PATIENT
  Age: 59 Year
  Sex: Male

DRUGS (2)
  1. REMERON [Suspect]
     Active Substance: MIRTAZAPINE
     Indication: PRODUCT USED FOR UNKNOWN INDICATION
     Dosage: 990 MG,
     Route: 065
  2. LORAZEPAM. [Suspect]
     Active Substance: LORAZEPAM
     Indication: PRODUCT USED FOR UNKNOWN INDICATION
     Dosage: 2.5 MG,
     Route: 065

REACTIONS (5)
  - Somnolence [Fatal]
  - Psychomotor hyperactivity [Fatal]
  - Confusional state [Fatal]
  - Toxicity to various agents [Fatal]
  - Cardiac arrest [Fatal]
